FAERS Safety Report 11255629 (Version 1)
Quarter: 2015Q3

REPORT INFORMATION
  Report Type: Spontaneous
  Country: FR (occurrence: FR)
  Receive Date: 20150709
  Receipt Date: 20150709
  Transmission Date: 20151125
  Serious: Yes (Hospitalization)
  Sender: FDA-Public Use
  Company Number: FR-ASTRAZENECA-2015SE65522

PATIENT
  Age: 63 Year
  Sex: Male

DRUGS (13)
  1. BRILIQUE [Suspect]
     Active Substance: TICAGRELOR
     Indication: ACUTE CORONARY SYNDROME
     Route: 048
     Dates: start: 201403, end: 20140515
  2. KARDEGIC [Suspect]
     Active Substance: ASPIRIN LYSINE
     Indication: ACUTE CORONARY SYNDROME
     Route: 048
     Dates: start: 20140517
  3. ZYLORIC [Concomitant]
     Active Substance: ALLOPURINOL
  4. ASPEGIC [Suspect]
     Active Substance: ASPIRIN DL-LYSINE
     Route: 041
     Dates: start: 20140514, end: 20140514
  5. RAPIFEN [Concomitant]
     Active Substance: ALFENTANIL HYDROCHLORIDE
  6. RISORDAN [Concomitant]
     Active Substance: ISOSORBIDE DINITRATE
     Dosage: 10 MG / 10 ML
     Route: 022
  7. BISOPROLOL ACTAVIS [Concomitant]
     Active Substance: BISOPROLOL
  8. KARDEGIC [Suspect]
     Active Substance: ASPIRIN LYSINE
     Indication: ACUTE CORONARY SYNDROME
     Route: 048
     Dates: start: 201403, end: 20140515
  9. HEPARIN [Suspect]
     Active Substance: HEPARIN SODIUM
     Route: 040
     Dates: start: 20140514, end: 20140514
  10. GELOFUSINE [Concomitant]
     Active Substance: GELATIN\SODIUM CHLORIDE
     Route: 041
  11. EPHEDRINE AGUETTANT [Concomitant]
     Active Substance: EPHEDRINE
  12. LOXEN [Concomitant]
     Active Substance: NICARDIPINE HYDROCHLORIDE
     Dosage: 5 MG / 5 ML
     Route: 042
  13. TAHOR [Concomitant]
     Active Substance: ATORVASTATIN CALCIUM

REACTIONS (2)
  - Cerebral haematoma [Recovered/Resolved]
  - Brain oedema [Recovered/Resolved]

NARRATIVE: CASE EVENT DATE: 20140515
